FAERS Safety Report 4394101-4 (Version None)
Quarter: 2004Q3

REPORT INFORMATION
  Report Type: 
  Country: None (occurrence: None)
  Receive Date: 20040708
  Receipt Date: 20040708
  Transmission Date: 20050211
  Serious: Yes (Hospitalization)
  Sender: FDA-Public Use
  Company Number: None

PATIENT
  Age: 44 Year
  Sex: Female

DRUGS (5)
  1. CEPHALEXIN [Suspect]
     Dosage: 250 MG QID ORAL
     Route: 048
     Dates: start: 20040430, end: 20040507
  2. ACIPHEX [Concomitant]
  3. SYNTHROID [Concomitant]
  4. METFORMIN HCL [Concomitant]
  5. ELAVIL [Concomitant]

REACTIONS (1)
  - CONVULSION [None]
